FAERS Safety Report 7774234-2 (Version None)
Quarter: 2011Q3

REPORT INFORMATION
  Report Type: 
  Country: None (occurrence: None)
  Receive Date: 20110923
  Receipt Date: 20110915
  Transmission Date: 20111222
  Serious: Yes (Hospitalization)
  Sender: FDA-Public Use
  Company Number: US-ASTELLAS-2011US005902

PATIENT
  Sex: Female
  Weight: 43 kg

DRUGS (3)
  1. ALIMTA [Suspect]
     Indication: LUNG NEOPLASM MALIGNANT
     Dosage: 715 MG, Q3W
     Route: 042
     Dates: end: 20110818
  2. OXYGEN [Concomitant]
     Indication: CHRONIC OBSTRUCTIVE PULMONARY DISEASE
     Dosage: UNK
     Route: 065
  3. ERLOTINIB HYDROCHLORIDE [Suspect]
     Indication: LUNG NEOPLASM MALIGNANT
     Dosage: 100 MG, DAYS 2-19, CYCLIC
     Route: 048
     Dates: end: 20110825

REACTIONS (3)
  - PNEUMONIA [None]
  - DEHYDRATION [None]
  - CONFUSIONAL STATE [None]
